FAERS Safety Report 4280699-3 (Version None)
Quarter: 2004Q1

REPORT INFORMATION
  Report Type: 
  Country: None (occurrence: None)
  Receive Date: 20040127
  Receipt Date: 20040120
  Transmission Date: 20041129
  Serious: Yes (Hospitalization)
  Sender: FDA-Public Use
  Company Number: EM2004-0024

PATIENT
  Age: 58 Year
  Sex: Male

DRUGS (8)
  1. PROLEUKIN [Suspect]
     Indication: MALIGNANT MELANOMA
     Dosage: 720000 IU/KG,Q8H, IV
     Route: 042
     Dates: start: 20031215, end: 20031218
  2. MDX-010 (MDX-010) [Suspect]
     Indication: MALIGNANT MELANOMA
     Dosage: Q 21 DAYS, IV
     Route: 042
     Dates: start: 20031124, end: 20031215
  3. FUROSEMIDE [Concomitant]
  4. INDOMETHACIN [Concomitant]
  5. METRONIDAZOLE [Concomitant]
  6. SODIUM HYPOCHLORITE (SODIUM HYPOCHLORITE) [Concomitant]
  7. OXYCODONE HCL [Concomitant]
  8. LOMOTIL [Concomitant]

REACTIONS (11)
  - ANAPHYLACTIC REACTION [None]
  - BLOOD PRESSURE SYSTOLIC INCREASED [None]
  - CHILLS [None]
  - DYSPHAGIA [None]
  - DYSPNOEA [None]
  - LARYNGOSPASM [None]
  - OXYGEN SATURATION DECREASED [None]
  - PYREXIA [None]
  - TYPE III IMMUNE COMPLEX MEDIATED REACTION [None]
  - URTICARIA [None]
  - WHEEZING [None]
